FAERS Safety Report 18840814 (Version 1)
Quarter: 2021Q1

REPORT INFORMATION
  Report Type: Spontaneous
  Country: FR (occurrence: FR)
  Receive Date: 20210203
  Receipt Date: 20210203
  Transmission Date: 20210419
  Serious: Yes (Other)
  Sender: FDA-Public Use
  Company Number: FR-MYLANLABS-2021M1006414

PATIENT
  Age: 21 Year
  Sex: Female
  Weight: 108 kg

DRUGS (3)
  1. TERCIAN                            /00759301/ [Concomitant]
     Active Substance: CYAMEMAZINE
     Dosage: UNK
  2. OLANZAPINE MYLAN [Suspect]
     Active Substance: OLANZAPINE
     Indication: PRODUCT USED FOR UNKNOWN INDICATION
     Dosage: 5 MG IN THE MORNING AND 10 MG IN THE EVENING
     Dates: start: 201706, end: 202008
  3. OLANZAPINE MYLAN [Suspect]
     Active Substance: OLANZAPINE
     Dosage: 5 MG IN THE MORNING AND 7.5 MG IN THE EVENING
     Dates: start: 202008

REACTIONS (11)
  - Libido decreased [Recovering/Resolving]
  - Disturbance in attention [Unknown]
  - Seborrhoeic dermatitis [Recovering/Resolving]
  - Weight increased [Recovering/Resolving]
  - Amenorrhoea [Recovering/Resolving]
  - Acne [Recovering/Resolving]
  - Pain [Recovering/Resolving]
  - Galactorrhoea [Recovering/Resolving]
  - Blood prolactin increased [Recovering/Resolving]
  - Insomnia [Recovering/Resolving]
  - Musculoskeletal stiffness [Recovering/Resolving]
